FAERS Safety Report 7564762-7 (Version None)
Quarter: 2011Q2

REPORT INFORMATION
  Report Type: 
  Country: None (occurrence: None)
  Receive Date: 20110622
  Receipt Date: 20101029
  Transmission Date: 20111010
  Serious: Yes (Death)
  Sender: FDA-Public Use
  Company Number: US-MYLANLABS-2010S1020023

PATIENT
  Age: 54 Year
  Sex: Male

DRUGS (7)
  1. ZANTAC [Concomitant]
  2. DEPAKOTE [Concomitant]
  3. VITAMIN B-12 [Concomitant]
  4. CLOZAPINE [Suspect]
  5. ASPIRIN [Concomitant]
  6. TOPROL-XL [Concomitant]
  7. ZETIA [Concomitant]

REACTIONS (1)
  - ROAD TRAFFIC ACCIDENT [None]
